FAERS Safety Report 9756077 (Version 2)
Quarter: 2013Q4

REPORT INFORMATION
  Report Type: Report from Study
  Country: US (occurrence: US)
  Receive Date: 20131213
  Receipt Date: 20131220
  Transmission Date: 20140711
  Serious: Yes (Hospitalization)
  Sender: FDA-Public Use
  Company Number: US-GLAXOSMITHKLINE-B0952093A

PATIENT
  Age: 68 Year
  Sex: Male
  Weight: 113 kg

DRUGS (50)
  1. BUPROPION [Suspect]
     Indication: DEPRESSION
     Dosage: 200MG PER DAY
     Route: 048
     Dates: start: 20130723, end: 20130805
  2. AMITRIPTYLIN [Suspect]
     Indication: DEPRESSION
     Dosage: 50MG PER DAY
     Route: 048
     Dates: start: 20130723, end: 20130805
  3. TRAZODONE [Suspect]
     Indication: DEPRESSION
     Dosage: 50MG PER DAY
     Route: 048
     Dates: start: 20130626, end: 20130805
  4. BLINDED FLUTICASONE FUROATE [Suspect]
     Indication: CHRONIC OBSTRUCTIVE PULMONARY DISEASE
     Dates: start: 20120224, end: 20120721
  5. BLINDED FLUTICASONE FUROATE + VILANTEROL TRIFENATATE [Suspect]
     Indication: CHRONIC OBSTRUCTIVE PULMONARY DISEASE
     Dates: start: 20120224, end: 20120721
  6. BLINDED NO THERAPY [Suspect]
     Indication: CHRONIC OBSTRUCTIVE PULMONARY DISEASE
     Dates: start: 20120224, end: 20120721
  7. BLINDED PLACEBO [Suspect]
     Indication: CHRONIC OBSTRUCTIVE PULMONARY DISEASE
     Dates: start: 20120224, end: 20120721
  8. BLINDED TRIAL MEDICATION [Suspect]
     Indication: CHRONIC OBSTRUCTIVE PULMONARY DISEASE
     Dates: start: 20120224, end: 20120721
  9. BLINDED VILANTEROL TRIFENATATE [Suspect]
     Indication: CHRONIC OBSTRUCTIVE PULMONARY DISEASE
     Dates: start: 20120224, end: 20120721
  10. NORVASC [Concomitant]
     Indication: HYPERTENSION
     Route: 048
     Dates: start: 20110303
  11. LISINOPRIL [Concomitant]
     Indication: HYPERTENSION
     Route: 048
     Dates: start: 20110307
  12. VITAMIN D3 [Concomitant]
     Indication: NUTRITIONAL SUPPLEMENTATION
     Route: 048
     Dates: start: 20110411
  13. LUMIGAN [Concomitant]
     Indication: GLAUCOMA
     Dosage: 1DROP PER DAY
     Dates: start: 20110307
  14. VICODIN [Concomitant]
     Indication: ARTHRALGIA
     Route: 048
     Dates: start: 20110907
  15. VICODIN [Concomitant]
     Indication: LUMBAR SPINAL STENOSIS
     Route: 048
     Dates: start: 20130330
  16. ALBUTEROL [Concomitant]
     Indication: CHRONIC OBSTRUCTIVE PULMONARY DISEASE
     Route: 055
     Dates: start: 20111231
  17. GABAPENTIN [Concomitant]
     Indication: DIABETIC NEUROPATHY
     Dosage: 200MG TWICE PER DAY
     Route: 048
     Dates: start: 20120518
  18. ROBITUSSIN [Concomitant]
     Indication: COUGH
     Route: 048
     Dates: start: 20120504
  19. NOVOLOG [Concomitant]
     Indication: TYPE 2 DIABETES MELLITUS
     Dosage: 100ML FOUR TIMES PER DAY
     Route: 058
     Dates: start: 20120731
  20. ASPIRIN [Concomitant]
     Indication: CARDIOVASCULAR EVENT PROPHYLAXIS
     Dosage: 325MG PER DAY
     Route: 048
     Dates: start: 20120731
  21. VITAMIN C [Concomitant]
     Indication: NUTRITIONAL SUPPLEMENTATION
     Dosage: 500MG TWICE PER DAY
     Route: 048
     Dates: start: 20120919
  22. ROPINIROLE [Concomitant]
     Indication: RESTLESS LEGS SYNDROME
     Route: 048
     Dates: start: 20121002
  23. METOPROLOL [Concomitant]
     Indication: HYPERTENSION
     Route: 048
     Dates: start: 20110307
  24. METOPROLOL [Concomitant]
     Dosage: 50MG TWICE PER DAY
     Route: 048
     Dates: start: 20130805, end: 20130807
  25. MAGNESIUM OXIDE [Concomitant]
     Indication: NUTRITIONAL SUPPLEMENTATION
     Dosage: 400MG TWICE PER DAY
     Route: 048
     Dates: start: 20120904
  26. MAGNESIUM OXIDE [Concomitant]
     Dosage: 400MG TWICE PER DAY
     Route: 048
     Dates: start: 20130723
  27. LANTUS [Concomitant]
     Indication: TYPE 2 DIABETES MELLITUS
     Dosage: 40MG TWICE PER DAY
     Route: 058
     Dates: start: 20120731
  28. TESTOSTERONE CYPIONATE [Concomitant]
     Indication: ANDROGEN DEFICIENCY
     Route: 030
     Dates: start: 20130128
  29. OMEPRAZOLE [Concomitant]
     Indication: GASTROOESOPHAGEAL REFLUX DISEASE
     Dosage: 20MG PER DAY
     Route: 048
     Dates: start: 20130128
  30. DEEP SEA [Concomitant]
     Indication: RHINITIS
     Dosage: .65PCT THREE TIMES PER DAY
     Dates: start: 20130128
  31. HYDRALAZINE [Concomitant]
     Indication: HYPERTENSION
     Dosage: 20MG FOUR TIMES PER DAY
     Route: 048
     Dates: start: 20130128
  32. HYDRALAZINE [Concomitant]
     Dosage: 50MG FOUR TIMES PER DAY
     Route: 048
     Dates: start: 20130330
  33. HYDRALAZINE [Concomitant]
     Dosage: 50MG FOUR TIMES PER DAY
     Route: 048
     Dates: start: 20130805
  34. LIPITOR [Concomitant]
     Indication: HYPERCHOLESTEROLAEMIA
     Dosage: 20MG PER DAY
     Route: 048
     Dates: start: 20130614, end: 20130804
  35. LIPITOR [Concomitant]
     Dosage: 40MG PER DAY
     Route: 048
     Dates: start: 20130805
  36. CIALIS [Concomitant]
     Indication: ERECTILE DYSFUNCTION
     Route: 048
     Dates: start: 20130128
  37. ZOLPIDEM [Concomitant]
     Indication: INSOMNIA
     Dosage: 10MG PER DAY
     Route: 048
     Dates: start: 20130128
  38. LORAZEPAM [Concomitant]
     Indication: ANXIETY
     Dosage: 1MG TWICE PER DAY
     Route: 048
     Dates: start: 20130330, end: 20130805
  39. VITAMIN A + D [Concomitant]
     Indication: DRY SKIN
     Route: 061
     Dates: start: 20130401
  40. NEXIUM [Concomitant]
     Indication: GASTROOESOPHAGEAL REFLUX DISEASE
     Route: 048
     Dates: start: 20111216
  41. LIPITOR [Concomitant]
     Indication: HYPERCHOLESTEROLAEMIA
     Dosage: 20MG PER DAY
     Dates: start: 20130614, end: 20130804
  42. LIPITOR [Concomitant]
     Dosage: 40MG PER DAY
     Route: 048
     Dates: start: 20130805
  43. ATIVAN [Concomitant]
     Indication: ANXIETY
     Dosage: 1MG TWICE PER DAY
     Route: 048
     Dates: start: 20130723, end: 20130804
  44. DEPAKOTE [Concomitant]
     Indication: BIPOLAR DISORDER
     Dosage: 700MG PER DAY
     Route: 048
     Dates: start: 20130727
  45. CLONIDINE [Concomitant]
     Indication: HYPERTENSION
     Dosage: .2MG TWICE PER DAY
     Route: 048
     Dates: start: 20130723
  46. COLACE [Concomitant]
     Indication: CONSTIPATION
     Dosage: 100MG TWICE PER DAY
     Route: 048
     Dates: start: 20130723
  47. HEPARIN [Concomitant]
     Indication: THROMBOSIS PROPHYLAXIS
     Route: 058
     Dates: start: 20130805, end: 20130807
  48. XALATAN [Concomitant]
     Indication: GLAUCOMA
     Dosage: .005PCT PER DAY
     Dates: start: 20130805
  49. SYMBICORT [Concomitant]
     Indication: CHRONIC OBSTRUCTIVE PULMONARY DISEASE
     Dosage: 160MG TWICE PER DAY
     Route: 055
     Dates: start: 201307, end: 20131106
  50. BUPROPION [Concomitant]
     Indication: DEPRESSION
     Dates: start: 20120830, end: 20130722

REACTIONS (1)
  - Overdose [Recovered/Resolved]
